FAERS Safety Report 21215520 (Version 1)
Quarter: 2022Q3

REPORT INFORMATION
  Report Type: Spontaneous
  Country: US (occurrence: US)
  Receive Date: 20220816
  Receipt Date: 20220816
  Transmission Date: 20221026
  Serious: No
  Sender: FDA-Public Use
  Company Number: US-TEVA-2022-US-2061916

PATIENT

DRUGS (1)
  1. AMPHETAMINE SULFATE\DEXTROAMPHETAMINE [Suspect]
     Active Substance: AMPHETAMINE SULFATE\DEXTROAMPHETAMINE
     Indication: Product used for unknown indication
     Route: 065

REACTIONS (6)
  - Euphoric mood [Unknown]
  - Feeling jittery [Unknown]
  - Anxiety [Unknown]
  - Irritability [Unknown]
  - Confusional state [Unknown]
  - Therapeutic response shortened [Unknown]
